FAERS Safety Report 11184967 (Version 1)
Quarter: 2015Q2

REPORT INFORMATION
  Report Type: Spontaneous
  Country: US (occurrence: US)
  Receive Date: 20150612
  Receipt Date: 20150612
  Transmission Date: 20150821
  Serious: No
  Sender: FDA-Public Use
  Company Number: US-ELI_LILLY_AND_COMPANY-US200603002589

PATIENT
  Sex: Female
  Weight: 99.77 kg

DRUGS (6)
  1. ABILIFY [Concomitant]
     Active Substance: ARIPIPRAZOLE
     Dates: start: 200606
  2. ZYPREXA [Suspect]
     Active Substance: OLANZAPINE
     Dates: start: 1995, end: 2006
  3. BENADRYL [Concomitant]
     Active Substance: DIPHENHYDRAMINE HYDROCHLORIDE
  4. MICRONOR [Concomitant]
     Active Substance: NORETHINDRONE
  5. IRON [Concomitant]
     Active Substance: IRON
  6. REMERON [Concomitant]
     Active Substance: MIRTAZAPINE
     Dates: start: 2006

REACTIONS (5)
  - Anxiety [Not Recovered/Not Resolved]
  - General physical health deterioration [Unknown]
  - Emotional distress [Not Recovered/Not Resolved]
  - Prescribed overdose [Recovered/Resolved]
  - Diabetes mellitus [Not Recovered/Not Resolved]
